FAERS Safety Report 5851176-0 (Version None)
Quarter: 2008Q3

REPORT INFORMATION
  Report Type: 
  Country: None (occurrence: None)
  Receive Date: 20080731
  Receipt Date: 20080402
  Transmission Date: 20090109
  Serious: No
  Sender: FDA-Public Use
  Company Number: 2006PV027179

PATIENT
  Age: 68 Year
  Sex: Female
  Weight: 107.1 kg

DRUGS (7)
  1. EXENATIDE(EXENATIDE) PEN,DISPOSABLE [Suspect]
     Indication: TYPE 2 DIABETES MELLITUS
     Dosage: 30 UG, 2/D, SUBCUTANEOUS, 10 UG, 2/D, SUBCUTANEOUS, 5 UG, 2/D, SUBCUTANEOUS
     Route: 058
     Dates: start: 20060301, end: 20060501
  2. EXENATIDE(EXENATIDE) PEN,DISPOSABLE [Suspect]
     Indication: TYPE 2 DIABETES MELLITUS
     Dosage: 30 UG, 2/D, SUBCUTANEOUS, 10 UG, 2/D, SUBCUTANEOUS, 5 UG, 2/D, SUBCUTANEOUS
     Route: 058
     Dates: start: 20060501, end: 20080101
  3. EXENATIDE(EXENATIDE) PEN,DISPOSABLE [Suspect]
     Indication: TYPE 2 DIABETES MELLITUS
     Dosage: 30 UG, 2/D, SUBCUTANEOUS, 10 UG, 2/D, SUBCUTANEOUS, 5 UG, 2/D, SUBCUTANEOUS
     Route: 058
     Dates: start: 20080101
  4. EXENATIDE(EXENATIDE) PEN,DISPOSABLE [Suspect]
  5. GLIPIZIDE [Concomitant]
  6. METFORMIN HCL [Concomitant]
  7. GABAPENTIN [Concomitant]

REACTIONS (10)
  - BLOOD GLUCOSE INCREASED [None]
  - CONTUSION [None]
  - FALL [None]
  - HYPOTENSION [None]
  - MEDICATION ERROR [None]
  - NASOPHARYNGITIS [None]
  - NEUROPATHY PERIPHERAL [None]
  - OVERDOSE [None]
  - SPINAL COLUMN STENOSIS [None]
  - WEIGHT DECREASED [None]
